FAERS Safety Report 11044390 (Version 1)
Quarter: 2015Q2

REPORT INFORMATION
  Report Type: Spontaneous
  Country: US (occurrence: None)
  Receive Date: 20150416
  Receipt Date: 20150416
  Transmission Date: 20150821
  Serious: Yes (Hospitalization)
  Sender: FDA-Public Use
  Company Number: None

PATIENT
  Age: 72 Year
  Sex: Male
  Weight: 86.8 kg

DRUGS (17)
  1. AMLODIPINE [Concomitant]
     Active Substance: AMLODIPINE BESYLATE
  2. HYDRALAZINE [Concomitant]
     Active Substance: HYDRALAZINE HYDROCHLORIDE
  3. ALLOPURINOL. [Concomitant]
     Active Substance: ALLOPURINOL
  4. AMIODARONE [Concomitant]
     Active Substance: AMIODARONE
  5. ATORVASTATIN [Concomitant]
     Active Substance: ATORVASTATIN
  6. METOLAZONE. [Concomitant]
     Active Substance: METOLAZONE
  7. CALCITRIOL. [Concomitant]
     Active Substance: CALCITRIOL
  8. LANTUS [Concomitant]
     Active Substance: INSULIN GLARGINE
  9. ERGOCALCIFEROL. [Concomitant]
     Active Substance: ERGOCALCIFEROL
  10. TORSEMIDE. [Concomitant]
     Active Substance: TORSEMIDE
  11. DOXAZOSIN [Concomitant]
     Active Substance: DOXAZOSIN\DOXAZOSIN MESYLATE
  12. KETOCONAZOLE. [Concomitant]
     Active Substance: KETOCONAZOLE
  13. SOVALDI [Suspect]
     Active Substance: SOFOSBUVIR
     Indication: HEPATITIS C
     Route: 048
  14. METOPROLOL [Concomitant]
     Active Substance: METOPROLOL
  15. ISOSORBIDE MONO ER [Concomitant]
  16. OLYSIO [Concomitant]
     Active Substance: SIMEPREVIR
  17. HUMALOG [Concomitant]
     Active Substance: INSULIN LISPRO

REACTIONS (8)
  - Bradycardia [None]
  - Syncope [None]
  - Hypokalaemia [None]
  - Ventricular tachycardia [None]
  - Cardio-respiratory arrest [None]
  - Shock [None]
  - Dizziness [None]
  - Palpitations [None]
